FAERS Safety Report 5757750-4 (Version None)
Quarter: 2008Q2

REPORT INFORMATION
  Report Type: 
  Country: None (occurrence: None)
  Receive Date: 20080529
  Receipt Date: 20080513
  Transmission Date: 20081010
  Serious: Yes (Other)
  Sender: FDA-Public Use
  Company Number: 8032830

PATIENT
  Age: 9 Year
  Sex: Female
  Weight: 23 kg

DRUGS (1)
  1. METHYLPHENIDATE HCL [Suspect]
     Indication: ATTENTION DEFICIT/HYPERACTIVITY DISORDER
     Dosage: PO
     Route: 048
     Dates: start: 20070620, end: 20080414

REACTIONS (8)
  - CAPILLARY DISORDER [None]
  - PARAESTHESIA [None]
  - PULSE ABSENT [None]
  - SKIN DISCOLOURATION [None]
  - SKIN EXFOLIATION [None]
  - TENDERNESS [None]
  - VASCULITIS [None]
  - WEIGHT DECREASED [None]
